FAERS Safety Report 5993492-8 (Version None)
Quarter: 2008Q4

REPORT INFORMATION
  Report Type: 
  Country: None (occurrence: None)
  Receive Date: 20081210
  Receipt Date: 20081128
  Transmission Date: 20090506
  Serious: Yes (Life-Threatening)
  Sender: FDA-Public Use
  Company Number: GXKR2008GB11377

PATIENT
  Age: 46 Year
  Sex: Female

DRUGS (1)
  1. CO-AMOXICLAV (NGX) (AMOXICILLIN, CLAVULANATE) UNKNOWN [Suspect]
     Dosage: 625 MG

REACTIONS (7)
  - ACUTE HEPATIC FAILURE [None]
  - HEPATITIS [None]
  - HEPATOCELLULAR INJURY [None]
  - LIVER TRANSPLANT [None]
  - MALAISE [None]
  - PYREXIA [None]
  - RASH [None]
